FAERS Safety Report 6739842-6 (Version None)
Quarter: 2010Q2

REPORT INFORMATION
  Report Type: 
  Country: None (occurrence: None)
  Receive Date: 20100525
  Receipt Date: 20100514
  Transmission Date: 20101027
  Serious: Yes (Other)
  Sender: FDA-Public Use
  Company Number: PHHY2010MX31604

PATIENT
  Sex: Female

DRUGS (2)
  1. GALVUS [Suspect]
     Dosage: 1 TABLET (50 MG) DAILY
     Route: 048
     Dates: start: 20050514
  2. EXFORGE [Suspect]
     Indication: HYPERTENSION
     Dosage: 1 TABLET DAILY
     Dates: start: 20060514

REACTIONS (3)
  - GLAUCOMA [None]
  - LACRIMATION INCREASED [None]
  - SCAB [None]
